FAERS Safety Report 5527243-8 (Version None)
Quarter: 2007Q4

REPORT INFORMATION
  Report Type: 
  Country: None (occurrence: None)
  Receive Date: 20071121
  Receipt Date: 20071111
  Transmission Date: 20080405
  Serious: Yes (Other)
  Sender: FDA-Public Use
  Company Number: CHPA2007US12181

PATIENT
  Age: 81 Year
  Sex: Female

DRUGS (1)
  1. MAALOX ANTIACID/ANTIGAS MAX STR MULTI SYMPTOM (NCH)(MAGNESIUM HYDROXID [Suspect]
     Indication: BOWEL MOVEMENT IRREGULARITY
     Dosage: SWIGS FROM THE BOTTLE FOR THREE YEARS, ORAL
     Route: 048
     Dates: start: 20040101

REACTIONS (6)
  - BACK PAIN [None]
  - DYSSTASIA [None]
  - INTENTIONAL DRUG MISUSE [None]
  - RENAL HAEMORRHAGE [None]
  - SELF-MEDICATION [None]
  - WRONG TECHNIQUE IN DRUG USAGE PROCESS [None]
